FAERS Safety Report 13100175 (Version 1)
Quarter: 2017Q1

REPORT INFORMATION
  Report Type: Spontaneous
  Country: US (occurrence: US)
  Receive Date: 20170110
  Receipt Date: 20170110
  Transmission Date: 20170428
  Serious: No
  Sender: FDA-Public Use
  Company Number: US-ASTRAZENECA-2016SF38338

PATIENT

DRUGS (1)
  1. SYMLIN [Suspect]
     Active Substance: PRAMLINTIDE ACETATE
     Route: 058
     Dates: start: 2008

REACTIONS (3)
  - Fluid retention [Unknown]
  - Weight decreased [Unknown]
  - Drug dose omission [Unknown]
